FAERS Safety Report 5394814-1 (Version None)
Quarter: 2007Q3

REPORT INFORMATION
  Report Type: 
  Country: None (occurrence: None)
  Receive Date: 20070720
  Receipt Date: 20070706
  Transmission Date: 20080115
  Serious: Yes (Life-Threatening)
  Sender: FDA-Public Use
  Company Number: PERIO-2007-0013

PATIENT
  Age: 47 Year
  Sex: Male

DRUGS (2)
  1. PERIOSTAT [Suspect]
     Indication: PERIODONTAL DISEASE
     Dosage: 20 MG, BID, PO
     Route: 048
     Dates: start: 20070515
  2. ZYRTEC [Concomitant]

REACTIONS (5)
  - ASTHENIA [None]
  - BRADYCARDIA [None]
  - HYPERTENSION [None]
  - HYPOTENSION [None]
  - SYNCOPE [None]
